FAERS Safety Report 4434365-1 (Version None)
Quarter: 2004Q3

REPORT INFORMATION
  Report Type: 
  Country: None (occurrence: None)
  Receive Date: 20040825
  Receipt Date: 20040811
  Transmission Date: 20050211
  Serious: Yes (Other)
  Sender: FDA-Public Use
  Company Number: USA040875197

PATIENT
  Age: 46 Year
  Sex: Female

DRUGS (1)
  1. INSULIN [Suspect]
     Indication: DIABETES MELLITUS
     Dates: start: 19390101

REACTIONS (3)
  - ACCIDENT AT WORK [None]
  - EYEBALL AVULSION [None]
  - PHARMACEUTICAL PRODUCT COMPLAINT [None]
